FAERS Safety Report 23105444 (Version 1)
Quarter: 2023Q4

REPORT INFORMATION
  Report Type: Spontaneous
  Country: PE (occurrence: PE)
  Receive Date: 20231025
  Receipt Date: 20231025
  Transmission Date: 20240109
  Serious: Yes (Hospitalization, Other)
  Sender: FDA-Public Use
  Company Number: PE-SA-2023SA326484

PATIENT
  Age: 34 Year
  Sex: Female

DRUGS (4)
  1. ENOXAPARIN SODIUM [Suspect]
     Active Substance: ENOXAPARIN SODIUM
     Indication: Deep vein thrombosis
     Dosage: 300 MG, QD
     Route: 058
  2. TRANEXAMIC ACID [Concomitant]
     Active Substance: TRANEXAMIC ACID
     Indication: Haematuria
     Dosage: UNK UNK, BID
  3. DICLOFENAC SODIUM [Concomitant]
     Active Substance: DICLOFENAC\DICLOFENAC SODIUM
     Indication: Pain in extremity
     Dosage: UNK
     Route: 030
  4. MORPHINE [Concomitant]
     Active Substance: MORPHINE
     Indication: Deep vein thrombosis

REACTIONS (4)
  - Acquired haemophilia [Unknown]
  - Condition aggravated [Unknown]
  - Abdominal pain upper [Unknown]
  - Vision blurred [Unknown]
